FAERS Safety Report 6523579-2 (Version None)
Quarter: 2009Q4

REPORT INFORMATION
  Report Type: 
  Country: None (occurrence: None)
  Receive Date: 20091231
  Receipt Date: 20091223
  Transmission Date: 20100525
  Serious: Yes (Hospitalization)
  Sender: FDA-Public Use
  Company Number: PHHO2009TR16003

PATIENT
  Sex: Female
  Weight: 70 kg

DRUGS (1)
  1. AFINITOR [Suspect]
     Indication: METASTATIC RENAL CELL CARCINOMA
     Dosage: 10MG/DAY
     Route: 048
     Dates: start: 20090417, end: 20091204

REACTIONS (6)
  - BONE PAIN [None]
  - DRUG INEFFECTIVE [None]
  - LUNG INFILTRATION [None]
  - MALIGNANT NEOPLASM PROGRESSION [None]
  - METASTASES TO BONE [None]
  - PNEUMONIA [None]
